FAERS Safety Report 18845615 (Version 1)
Quarter: 2021Q1

REPORT INFORMATION
  Report Type: Report from Study
  Country: US (occurrence: US)
  Receive Date: 20210203
  Receipt Date: 20210203
  Transmission Date: 20210419
  Serious: No
  Sender: FDA-Public Use
  Company Number: US-EXELIXIS-CABO-20029773

PATIENT
  Age: 79 Year
  Sex: Male

DRUGS (3)
  1. CABOMETYX [Suspect]
     Active Substance: CABOZANTINIB S-MALATE
     Dosage: 40 MG, QD
     Dates: start: 20200511, end: 20200628
  2. CABOMETYX [Suspect]
     Active Substance: CABOZANTINIB S-MALATE
     Indication: RENAL CELL CARCINOMA
     Dosage: 40 MG, QD
     Dates: start: 20200502, end: 20200508
  3. CABOMETYX [Suspect]
     Active Substance: CABOZANTINIB S-MALATE
     Dosage: 40 MG, BID (TOOK 40 MG AT 1 AM IN THE MORNING AND AGAIN AT 5 PM THAT EVENING)
     Dates: start: 20200509, end: 20200509

REACTIONS (13)
  - Decreased appetite [Unknown]
  - Tooth infection [Unknown]
  - Constipation [Unknown]
  - Toothache [Unknown]
  - Drug intolerance [Unknown]
  - Nausea [Not Recovered/Not Resolved]
  - Weight decreased [Unknown]
  - Accidental overdose [Unknown]
  - Rash [Unknown]
  - Diarrhoea [Unknown]
  - Dehydration [Unknown]
  - Vomiting [Not Recovered/Not Resolved]
  - Dysgeusia [Not Recovered/Not Resolved]

NARRATIVE: CASE EVENT DATE: 202005
